FAERS Safety Report 5652389-3 (Version None)
Quarter: 2008Q1

REPORT INFORMATION
  Report Type: 
  Country: None (occurrence: None)
  Receive Date: 20080305
  Receipt Date: 20080305
  Transmission Date: 20080703
  Serious: Yes (Other)
  Sender: FDA-Public Use
  Company Number: None

PATIENT
  Sex: Female

DRUGS (1)
  1. SERTRALINE [Suspect]
     Dosage: 100MG  (2T, 50MG)  QD (PM)  ORAL
     Route: 048

REACTIONS (3)
  - PETECHIAE [None]
  - RASH ERYTHEMATOUS [None]
  - RASH PRURITIC [None]
